FAERS Safety Report 11139526 (Version 1)
Quarter: 2015Q2

REPORT INFORMATION
  Report Type: Spontaneous
  Country: US (occurrence: None)
  Receive Date: 20150522
  Receipt Date: 20150522
  Transmission Date: 20150821
  Serious: Yes (Other)
  Sender: FDA-Public Use
  Company Number: 2015AKN00271

PATIENT
  Age: 30 Year
  Sex: Male
  Weight: 85.3 kg

DRUGS (6)
  1. TRILEPTAL [Concomitant]
     Active Substance: OXCARBAZEPINE
  2. LISINOPRIL. [Concomitant]
     Active Substance: LISINOPRIL
  3. MYORISAN [Suspect]
     Active Substance: ISOTRETINOIN
     Indication: ACNE
     Route: 048
     Dates: start: 20150414, end: 20150501
  4. KLONOPIN [Concomitant]
     Active Substance: CLONAZEPAM
  5. TRAZODONE [Concomitant]
     Active Substance: TRAZODONE HYDROCHLORIDE
  6. WELLBUTRIN XL (BUPROPION) [Concomitant]

REACTIONS (9)
  - Depressed mood [None]
  - Stress [None]
  - Skin exfoliation [None]
  - Pruritus [None]
  - Feeling abnormal [None]
  - Erythema [None]
  - Photosensitivity reaction [None]
  - Anxiety [None]
  - Dermatitis [None]

NARRATIVE: CASE EVENT DATE: 20150501
